FAERS Safety Report 10609166 (Version 2)
Quarter: 2014Q4

REPORT INFORMATION
  Report Type: Spontaneous
  Country: IT (occurrence: IT)
  Receive Date: 20141126
  Receipt Date: 20141126
  Transmission Date: 20150529
  Serious: Yes (Death, Other)
  Sender: FDA-Public Use
  Company Number: IT-AUROBINDO-AUR-APL-2014-09196

PATIENT
  Age: 64 Year
  Sex: Male

DRUGS (5)
  1. LEVETIRACETAM. [Suspect]
     Active Substance: LEVETIRACETAM
     Indication: PARTIAL SEIZURES
     Dosage: 3000 MG, DAILY
     Route: 065
  2. PHENOBARBITAL. [Suspect]
     Active Substance: PHENOBARBITAL
     Indication: PARTIAL SEIZURES
     Dosage: 50 MG, ONCE A DAY
     Route: 065
  3. LACOSAMIDE [Suspect]
     Active Substance: LACOSAMIDE
     Dosage: 200 MG, TWO TIMES A DAY
     Route: 048
  4. LACOSAMIDE [Suspect]
     Active Substance: LACOSAMIDE
     Dosage: 100 MG, TWO TIMES A DAY
     Route: 048
  5. LACOSAMIDE [Suspect]
     Active Substance: LACOSAMIDE
     Indication: PARTIAL SEIZURES
     Dosage: 200 MG, SINGLE LOADING DOSE
     Route: 048

REACTIONS (8)
  - Stupor [Unknown]
  - Seizure [Recovered/Resolved]
  - Hepatic encephalopathy [Unknown]
  - Partial seizures with secondary generalisation [Recovered/Resolved]
  - Death [Fatal]
  - Mental status changes [Unknown]
  - Disease progression [Unknown]
  - Hepatic failure [Unknown]
